FAERS Safety Report 5129463-3 (Version None)
Quarter: 2006Q4

REPORT INFORMATION
  Report Type: 
  Country: None (occurrence: None)
  Receive Date: 20061018
  Receipt Date: 20061009
  Transmission Date: 20070319
  Serious: Yes (Other)
  Sender: FDA-Public Use
  Company Number: ES-JNJFOC-20060901850

PATIENT
  Sex: Female

DRUGS (2)
  1. REMICADE [Suspect]
     Indication: PSORIASIS
     Dosage: 2 INFUSIONS
     Route: 042
  2. ISONIAZID [Concomitant]
     Route: 065

REACTIONS (4)
  - DEMYELINATION [None]
  - INFUSION RELATED REACTION [None]
  - PAIN IN EXTREMITY [None]
  - VOMITING [None]
